FAERS Safety Report 5062051-6 (Version None)
Quarter: 2006Q3

REPORT INFORMATION
  Report Type: 
  Country: None (occurrence: None)
  Receive Date: 20060720
  Receipt Date: 20060720
  Transmission Date: 20061208
  Serious: Yes (Hospitalization)
  Sender: FDA-Public Use
  Company Number: None

PATIENT
  Age: 81 Year
  Sex: Male
  Weight: 48.9885 kg

DRUGS (4)
  1. ROCEPHIN [Suspect]
     Indication: PNEUMONIA
     Dosage: 1 G DAILY
     Dates: start: 20060408, end: 20060410
  2. CEFUROXIME [Suspect]
     Dosage: 500 MG BID
     Dates: start: 20060411, end: 20060421
  3. AZITHROMYCIN [Suspect]
     Dates: start: 20060411, end: 20060415
  4. . [Concomitant]

REACTIONS (2)
  - DIARRHOEA [None]
  - HYPOKALAEMIA [None]
